FAERS Safety Report 23504968 (Version 1)
Quarter: 2024Q1

REPORT INFORMATION
  Report Type: Spontaneous
  Country: GB (occurrence: GB)
  Receive Date: 20240209
  Receipt Date: 20240209
  Transmission Date: 20240409
  Serious: No
  Sender: FDA-Public Use
  Company Number: None

PATIENT
  Age: 43 Year
  Sex: Female
  Weight: 90.59 kg

DRUGS (7)
  1. GABAPENTIN [Suspect]
     Active Substance: GABAPENTIN
     Indication: Hormone replacement therapy
     Dosage: 3 DOSAGE FORM, QD (1 DAY, 100MG OR 300MGCAPSULE))
     Route: 048
     Dates: start: 20220523
  2. CANDESARTAN [Concomitant]
     Active Substance: CANDESARTAN
     Indication: Product used for unknown indication
     Dosage: 1 DOSAGE FORM, OD (TABLET ONCE A DAY)
     Route: 065
     Dates: start: 20220405
  3. CANDESARTAN [Concomitant]
     Active Substance: CANDESARTAN
     Dosage: 1 DOSAGE FORM, OD (1 TABLET ONCE A DAY)
     Route: 065
     Dates: start: 20220405, end: 20220405
  4. ESTRADIOL [Concomitant]
     Active Substance: ESTRADIOL
     Indication: Product used for unknown indication
     Dosage: UNK (2 MEASURE DAILY. DOSE SHOULD BE APPLIED TO EACH ARM/SHOULDER (OR THIGH))
     Route: 065
     Dates: start: 20220523
  5. FERROUS FUMARATE [Concomitant]
     Active Substance: FERROUS FUMARATE
     Indication: Product used for unknown indication
     Dosage: UNK (ONE DAILY)
     Route: 065
     Dates: start: 20220405, end: 20220523
  6. FERROUS FUMARATE [Concomitant]
     Active Substance: FERROUS FUMARATE
     Dosage: UNK, QD (ONE DAILY)
     Route: 065
     Dates: start: 20220405
  7. Oestrogel Pump-Pack [Concomitant]
     Indication: Product used for unknown indication
     Dosage: UNK
     Route: 065

REACTIONS (2)
  - Restlessness [Recovering/Resolving]
  - Agitation [Recovering/Resolving]

NARRATIVE: CASE EVENT DATE: 20220510
